FAERS Safety Report 5217673-6 (Version None)
Quarter: 2006Q4

REPORT INFORMATION
  Report Type: 
  Country: None (occurrence: None)
  Receive Date: 20061130
  Receipt Date: 20060815
  Transmission Date: 20070319
  Serious: Yes (Other)
  Sender: FDA-Public Use
  Company Number: US200601003905

PATIENT
  Age: 36 Year
  Sex: Male
  Weight: 106.6 kg

DRUGS (1)
  1. ZYPREXA [Suspect]
     Indication: SCHIZOPHRENIA
     Dosage: 10 MG, 20 MG
     Dates: start: 20000501, end: 20011001

REACTIONS (3)
  - DIABETES MELLITUS NON-INSULIN-DEPENDENT [None]
  - METABOLIC DISORDER [None]
  - WEIGHT INCREASED [None]
